FAERS Safety Report 19258896 (Version 6)
Quarter: 2021Q4

REPORT INFORMATION
  Report Type: Spontaneous
  Country: CZ (occurrence: CZ)
  Receive Date: 20210514
  Receipt Date: 20211011
  Transmission Date: 20220303
  Serious: Yes (Death, Other)
  Sender: FDA-Public Use
  Company Number: CZ-MYLANLABS-2021M1027451

PATIENT
  Age: 54 Year
  Sex: Female

DRUGS (29)
  1. LETROZOLE [Suspect]
     Active Substance: LETROZOLE
     Indication: Breast cancer
     Dosage: UNK
     Dates: start: 2015
  2. LETROZOLE [Suspect]
     Active Substance: LETROZOLE
     Indication: Breast cancer metastatic
     Dosage: 2.5 MILLIGRAM, QD (2.5 MG, QD   )
     Dates: start: 201507, end: 201811
  3. LETROZOLE [Suspect]
     Active Substance: LETROZOLE
     Indication: HER2 positive breast cancer
  4. LETROZOLE [Suspect]
     Active Substance: LETROZOLE
     Indication: Hormone therapy
  5. PACLITAXEL [Suspect]
     Active Substance: PACLITAXEL
     Indication: Breast cancer
     Dosage: 90 MG/M2, WEEKLY
     Dates: start: 2018
  6. PACLITAXEL [Suspect]
     Active Substance: PACLITAXEL
     Dosage: 90 MILLILITRE PER SQUARE METRE QW
  7. FULVESTRANT [Suspect]
     Active Substance: FULVESTRANT
     Indication: Breast cancer
     Dosage: UNTIL DEC 2019
     Dates: end: 201912
  8. FULVESTRANT [Suspect]
     Active Substance: FULVESTRANT
     Indication: Hormone therapy
     Dosage: UNK
  9. DOCETAXEL [Suspect]
     Active Substance: DOCETAXEL
     Indication: Breast cancer
     Dosage: UNK
     Dates: start: 201503, end: 201507
  10. DOCETAXEL [Suspect]
     Active Substance: DOCETAXEL
     Dosage: TWO CYCLES   UNK
  11. DOCETAXEL [Suspect]
     Active Substance: DOCETAXEL
     Dosage: 75 MG/M2; 6 CYCLES, IN THE INTERVAL OF 21 DAYS
     Route: 042
     Dates: start: 201503, end: 201507
  12. DOCETAXEL [Suspect]
     Active Substance: DOCETAXEL
     Dosage: 2 CYCLES, 90 MG/M2,EVERY 3 WEEKS
     Route: 042
  13. DOCETAXEL [Suspect]
     Active Substance: DOCETAXEL
     Dosage: 75 MG/M2; 4 CYCLES EVERY 21 DAYS
     Route: 042
  14. TRASTUZUMAB [Suspect]
     Active Substance: TRASTUZUMAB
     Indication: Breast cancer metastatic
     Dosage: 8 MILLIGRAM/KILOGRAM
     Route: 042
     Dates: start: 201503
  15. TRASTUZUMAB [Suspect]
     Active Substance: TRASTUZUMAB
     Indication: HER2 positive breast cancer
     Dosage: 6 MILLIGRAM/KILOGRAM
     Route: 042
  16. TRASTUZUMAB [Suspect]
     Active Substance: TRASTUZUMAB
     Indication: Breast cancer
     Dosage: ANNUAL TRASTUZUMAB SCHEDULE UNTIL MAY 2011
  17. PERTUZUMAB\TRASTUZUMAB [Suspect]
     Active Substance: PERTUZUMAB\TRASTUZUMAB
     Indication: Chemotherapy
     Dosage: UNK
     Dates: start: 201503, end: 201507
  18. PERTUZUMAB [Suspect]
     Active Substance: PERTUZUMAB
     Indication: HER2 positive breast cancer
     Dosage: 420 MILLIGRAM
     Route: 042
     Dates: start: 201503
  19. PERTUZUMAB [Suspect]
     Active Substance: PERTUZUMAB
     Indication: Breast cancer
     Dosage: UNK
     Dates: start: 201503
  20. TAMOXIFEN [Suspect]
     Active Substance: TAMOXIFEN
     Indication: Breast cancer
     Dosage: UNK
     Dates: start: 201009
  21. TAMOXIFEN [Suspect]
     Active Substance: TAMOXIFEN
     Indication: Hormone therapy
     Dosage: UNK
  22. GOSERELIN [Suspect]
     Active Substance: GOSERELIN
     Indication: Breast cancer
     Dosage: UNK
     Dates: start: 201009
  23. GOSERELIN [Suspect]
     Active Substance: GOSERELIN
     Indication: Hormone therapy
     Dosage: UNK
  24. EPIRUBICIN [Suspect]
     Active Substance: EPIRUBICIN
     Indication: Breast cancer
     Dosage: 100 MILLIGRAM/SQ. METER(100 MG/M2, 4 CYCLES EVERY 21 DAYS)
     Route: 042
  25. EPIRUBICIN [Suspect]
     Active Substance: EPIRUBICIN
     Dosage: 100 MILLILITRE PER SQUARE METRE, Q3W (4 WEEKS))
     Route: 042
  26. CYCLOPHOSPHAMIDE [Suspect]
     Active Substance: CYCLOPHOSPHAMIDE
     Indication: Breast cancer
     Dosage: 1000 MILLIGRAM/SQ. METER (1000 MG/M2, 4 CYCLES EVERY 21 DAYS)
     Route: 042
  27. CYCLOPHOSPHAMIDE [Suspect]
     Active Substance: CYCLOPHOSPHAMIDE
     Dosage: MILLILITRE PER SQUARE METRE, Q3W
     Route: 042
  28. HERCEPTIN [Suspect]
     Active Substance: TRASTUZUMAB
     Indication: Breast cancer metastatic
     Dosage: 8 MG/KG, (FROM THE SECOND ADMINISTRATION AT THE DOSE OF 6 MG/KG)
     Route: 042
     Dates: start: 201503
  29. HERCEPTIN [Suspect]
     Active Substance: TRASTUZUMAB
     Dosage: 6 MG/KG, EVERY 21 DAYS (YEARLY SCHEME UNTIL MAY 2011)
     Route: 042
     Dates: start: 201105

REACTIONS (16)
  - Neuropathy peripheral [Fatal]
  - Breast cancer metastatic [Fatal]
  - Asthenia [Fatal]
  - Alopecia [Fatal]
  - Disease progression [Fatal]
  - Haematotoxicity [Fatal]
  - Diarrhoea [Fatal]
  - Nail disorder [Fatal]
  - Fatigue [Unknown]
  - HER2 positive breast cancer [Unknown]
  - Concomitant disease aggravated [Unknown]
  - Breast cancer [Unknown]
  - Disease recurrence [Unknown]
  - Joint stiffness [Unknown]
  - Myalgia [Unknown]
  - Arthralgia [Unknown]

NARRATIVE: CASE EVENT DATE: 20150101
